FAERS Safety Report 6653226-0 (Version None)
Quarter: 2010Q1

REPORT INFORMATION
  Report Type: 
  Country: None (occurrence: None)
  Receive Date: 20100326
  Receipt Date: 20100318
  Transmission Date: 20100710
  Serious: Yes (Hospitalization)
  Sender: FDA-Public Use
  Company Number: US-BRISTOL-MYERS SQUIBB COMPANY-14926778

PATIENT
  Age: 77 Year
  Sex: Male
  Weight: 67 kg

DRUGS (13)
  1. CARBOPLATIN [Suspect]
     Indication: NON-SMALL CELL LUNG CANCER
     Dosage: 1 DF = 6 (AUC)
     Route: 042
     Dates: start: 20090402, end: 20090618
  2. PEMETREXED DISODIUM [Suspect]
     Indication: NON-SMALL CELL LUNG CANCER
     Dosage: ALSO GIVEN ON 09JUL09
     Route: 042
     Dates: start: 20090402
  3. BEVACIZUMAB [Suspect]
     Indication: NON-SMALL CELL LUNG CANCER
     Dosage: ALSO TAKEN ON 09JUL09.MAINTANENCE STOP DATE 30-JUL-2009.
     Route: 042
     Dates: start: 20090402
  4. SIMVASTATIN [Concomitant]
  5. ADVAIR DISKUS 100/50 [Concomitant]
  6. ALBUTEROL [Concomitant]
     Route: 055
  7. AMBIEN [Concomitant]
     Dates: start: 20090318
  8. LORTAB [Concomitant]
     Dates: start: 20090325
  9. VITAMIN B-12 [Concomitant]
     Dates: start: 20090528
  10. FOLIC ACID [Concomitant]
     Dates: start: 20090323
  11. ZOFRAN [Concomitant]
     Dates: start: 20090513
  12. MUCINEX [Concomitant]
     Dates: start: 20090513
  13. XANAX [Concomitant]
     Dates: start: 20090513

REACTIONS (2)
  - EMPHYSEMA [None]
  - STARVATION [None]
